APPROVED DRUG PRODUCT: LOCOID
Active Ingredient: HYDROCORTISONE BUTYRATE
Strength: 0.1%
Dosage Form/Route: SOLUTION;TOPICAL
Application: N019819 | Product #001
Applicant: YAMANOUCHI EUROPE BV
Approved: Sep 15, 1988 | RLD: No | RS: No | Type: DISCN